FAERS Safety Report 5161407-0 (Version None)
Quarter: 2006Q4

REPORT INFORMATION
  Report Type: 
  Country: None (occurrence: None)
  Receive Date: 20061130
  Receipt Date: 20060503
  Transmission Date: 20070319
  Serious: Yes (Hospitalization, Other)
  Sender: FDA-Public Use
  Company Number: US-GLAXOSMITHKLINE-A0604206A

PATIENT
  Age: 21 Year
  Sex: Female

DRUGS (5)
  1. WELLBUTRIN XL [Suspect]
     Indication: DEPRESSION
     Dosage: 300MG PER DAY
     Route: 048
     Dates: start: 20051227, end: 20060217
  2. MICROGESTIN FE [Concomitant]
  3. GABAPENTIN [Concomitant]
     Indication: ANXIETY
     Route: 048
     Dates: start: 20051201
  4. VALIUM [Concomitant]
     Indication: INSOMNIA
  5. WELLBUTRIN SR [Concomitant]

REACTIONS (4)
  - GRAND MAL CONVULSION [None]
  - INSOMNIA [None]
  - MOOD SWINGS [None]
  - POSTICTAL STATE [None]
